FAERS Safety Report 23758357 (Version 1)
Quarter: 2024Q2

REPORT INFORMATION
  Report Type: Spontaneous
  Country: US (occurrence: US)
  Receive Date: 20240418
  Receipt Date: 20240418
  Transmission Date: 20240716
  Serious: No
  Sender: FDA-Public Use
  Company Number: US-ABBVIE-5723485

PATIENT

DRUGS (1)
  1. LATISSE [Suspect]
     Active Substance: BIMATOPROST
     Indication: Product used for unknown indication
     Dosage: FORM STRENGTH : BIMATOPROST 0.3MG/ML SOL,  0.03%?3 ML 70 APPLICATORS
     Route: 047

REACTIONS (1)
  - Drug ineffective [Unknown]
